FAERS Safety Report 17328859 (Version 1)
Quarter: 2020Q1

REPORT INFORMATION
  Report Type: Spontaneous
  Country: US (occurrence: US)
  Receive Date: 20200109
  Receipt Date: 20200109
  Transmission Date: 20200409
  Serious: No
  Sender: FDA-Public Use
  Company Number: None

PATIENT
  Age: 71 Year
  Sex: Female
  Weight: 61.23 kg

DRUGS (7)
  1. CALCIUM [Concomitant]
     Active Substance: CALCIUM
  2. BIOTIN [Concomitant]
     Active Substance: BIOTIN
  3. DOXYCYCLINE. [Concomitant]
     Active Substance: DOXYCYCLINE
  4. BOTOX [Suspect]
     Active Substance: ONABOTULINUMTOXINA
     Indication: LACRIMATION INCREASED
     Dosage: ?          QUANTITY:2 DF DOSAGE FORM;?
     Route: 031
     Dates: start: 20190916, end: 20190916
  5. METFORMIN [Concomitant]
     Active Substance: METFORMIN HYDROCHLORIDE
  6. ZYLET [Concomitant]
     Active Substance: LOTEPREDNOL ETABONATE\TOBRAMYCIN
  7. VIT B [Concomitant]
     Active Substance: VITAMIN B

REACTIONS (16)
  - Diplopia [None]
  - Eye inflammation [None]
  - Lung neoplasm malignant [None]
  - Visual impairment [None]
  - Lacrimation increased [None]
  - Photosensitivity reaction [None]
  - Dysphagia [None]
  - Eyelid ptosis [None]
  - Eye pain [None]
  - Eyelid function disorder [None]
  - Choking sensation [None]
  - Palatal disorder [None]
  - Headache [None]
  - Therapy non-responder [None]
  - Vision blurred [None]
  - Visual field defect [None]

NARRATIVE: CASE EVENT DATE: 20190921
